FAERS Safety Report 13951281 (Version 5)
Quarter: 2018Q3

REPORT INFORMATION
  Report Type: Report from Study
  Country: JP (occurrence: JP)
  Receive Date: 20170908
  Receipt Date: 20180726
  Transmission Date: 20181010
  Serious: Yes (Hospitalization, Other)
  Sender: FDA-Public Use
  Company Number: JP-INCYTE CORPORATION-2017IN007342

PATIENT

DRUGS (23)
  1. SEPAMIT?R [Concomitant]
     Active Substance: NIFEDIPINE
     Indication: PRODUCT USED FOR UNKNOWN INDICATION
     Dosage: 10 MG, QD
     Route: 048
     Dates: end: 20170808
  2. RED BLOOD CELLS?LEUKOCYTES REDUCED [Concomitant]
     Active Substance: HUMAN RED BLOOD CELL
     Dosage: 2 IU, UNK
     Route: 042
  3. RED BLOOD CELLS?LEUKOCYTES REDUCED [Concomitant]
     Active Substance: HUMAN RED BLOOD CELL
     Dosage: 2 IU, UNK
     Route: 042
  4. RED BLOOD CELLS?LEUKOCYTES REDUCED [Concomitant]
     Active Substance: HUMAN RED BLOOD CELL
     Dosage: 2 IU, UNK
     Route: 042
  5. JAKAVI [Suspect]
     Active Substance: RUXOLITINIB
     Indication: MYELOFIBROSIS
     Dosage: 5 MG, BID
     Route: 048
     Dates: start: 20170722, end: 20170804
  6. AMLODIPINE [Concomitant]
     Active Substance: AMLODIPINE BESYLATE
     Indication: PRODUCT USED FOR UNKNOWN INDICATION
     Dosage: 5 MG, QD
     Route: 048
     Dates: end: 20170808
  7. WARFARIN [Concomitant]
     Active Substance: WARFARIN
     Indication: PRODUCT USED FOR UNKNOWN INDICATION
     Dosage: 1 MG, QD
     Route: 048
     Dates: end: 20170808
  8. FUROSEMIDE. [Concomitant]
     Active Substance: FUROSEMIDE
     Indication: PRODUCT USED FOR UNKNOWN INDICATION
     Dosage: 80 MG, QD
     Route: 048
     Dates: end: 20170808
  9. DIART [Concomitant]
     Active Substance: AZOSEMIDE
     Indication: PRODUCT USED FOR UNKNOWN INDICATION
     Dosage: 60 MG, QD
     Route: 048
     Dates: start: 201705, end: 20170808
  10. RED BLOOD CELLS?LEUKOCYTES REDUCED [Concomitant]
     Active Substance: HUMAN RED BLOOD CELL
     Indication: MYELOFIBROSIS
     Dosage: 2 IU, UNK
     Route: 042
     Dates: start: 20170202
  11. BAYASPIRIN [Concomitant]
     Active Substance: ASPIRIN
     Indication: PRODUCT USED FOR UNKNOWN INDICATION
     Dosage: 100 MG, QD
     Route: 048
     Dates: end: 20170808
  12. ATENOLOL. [Concomitant]
     Active Substance: ATENOLOL
     Indication: PRODUCT USED FOR UNKNOWN INDICATION
     Dosage: 50 MG, QD
     Route: 048
     Dates: end: 20170808
  13. TAKECAB [Concomitant]
     Active Substance: VONOPRAZAN FUMURATE
     Indication: PRODUCT USED FOR UNKNOWN INDICATION
     Dosage: 20 MG, QD
     Route: 048
     Dates: start: 20170804, end: 20170807
  14. RED BLOOD CELLS?LEUKOCYTES REDUCED [Concomitant]
     Active Substance: HUMAN RED BLOOD CELL
     Dosage: 2 IU, UNK
     Route: 042
  15. RED BLOOD CELLS?LEUKOCYTES REDUCED [Concomitant]
     Active Substance: HUMAN RED BLOOD CELL
     Dosage: 2 IU, UNK
     Route: 042
  16. RED BLOOD CELLS?LEUKOCYTES REDUCED [Concomitant]
     Active Substance: HUMAN RED BLOOD CELL
     Dosage: 2 IU, UNK
     Route: 042
     Dates: end: 20170909
  17. NARCARICIN [Concomitant]
     Active Substance: BENZBROMARONE
     Indication: PRODUCT USED FOR UNKNOWN INDICATION
     Dosage: 50 MG, QD
     Route: 048
     Dates: end: 20170808
  18. VALSARTAN. [Concomitant]
     Active Substance: VALSARTAN
     Indication: PRODUCT USED FOR UNKNOWN INDICATION
     Dosage: 80 MG, QD
     Route: 048
     Dates: end: 20170808
  19. SPIRONOLACTONE. [Concomitant]
     Active Substance: SPIRONOLACTONE
     Indication: PRODUCT USED FOR UNKNOWN INDICATION
     Dosage: 25 MG, BID
     Route: 048
     Dates: end: 20170808
  20. RED BLOOD CELLS?LEUKOCYTES REDUCED [Concomitant]
     Active Substance: HUMAN RED BLOOD CELL
     Dosage: 2 IU, UNK
     Route: 042
  21. RED BLOOD CELLS?LEUKOCYTES REDUCED [Concomitant]
     Active Substance: HUMAN RED BLOOD CELL
     Dosage: 2 IU, UNK
     Route: 042
  22. RED BLOOD CELLS?LEUKOCYTES REDUCED [Concomitant]
     Active Substance: HUMAN RED BLOOD CELL
     Dosage: 2 IU, UNK
     Route: 042
  23. RED BLOOD CELLS?LEUKOCYTES REDUCED [Concomitant]
     Active Substance: HUMAN RED BLOOD CELL
     Dosage: 2 IU, UNK
     Route: 042

REACTIONS (3)
  - Haemoglobin decreased [Unknown]
  - Acute kidney injury [Recovered/Resolved]
  - Anaemia [Recovered/Resolved]

NARRATIVE: CASE EVENT DATE: 20170804
